FAERS Safety Report 22343973 (Version 1)
Quarter: 2023Q2

REPORT INFORMATION
  Report Type: Spontaneous
  Country: US (occurrence: None)
  Receive Date: 20230518
  Receipt Date: 20230518
  Transmission Date: 20230722
  Serious: No
  Sender: FDA-Public Use
  Company Number: None

PATIENT
  Sex: Female

DRUGS (18)
  1. CAPECITABINE [Suspect]
     Active Substance: CAPECITABINE
     Indication: Breast cancer female
     Dosage: OTHER QUANTITY : 2TAM 3TPM;?FREQUENCY : DAILY;?OTHER ROUTE : PO 14D ON 7D OFF;?
     Route: 050
  2. Albuterol [Concomitant]
  3. AMLODIPINE [Concomitant]
  4. Aspirin [Concomitant]
  5. ATENOLOL [Concomitant]
  6. BENZONATATE [Concomitant]
     Active Substance: BENZONATATE
  7. Calcium 500/D [Concomitant]
  8. ESOMEPRAZOLE [Concomitant]
     Active Substance: ESOMEPRAZOLE
  9. EZETIMIBE [Concomitant]
     Active Substance: EZETIMIBE
  10. FAMOTIDINE [Concomitant]
     Active Substance: FAMOTIDINE
  11. LORAZEPAM [Concomitant]
     Active Substance: LORAZEPAM
  12. LOPERAMIDE [Concomitant]
     Active Substance: LOPERAMIDE
  13. MECLIZINE [Concomitant]
     Active Substance: MECLIZINE HYDROCHLORIDE
  14. ONDANSETRON [Concomitant]
  15. VITAMIN D3 [Concomitant]
     Active Substance: CHOLECALCIFEROL
  16. XGEVA [Concomitant]
     Active Substance: DENOSUMAB
  17. DIETARY SUPPLEMENT\HERBALS\MILK THISTLE [Concomitant]
     Active Substance: MILK THISTLE
  18. PEPCID [Concomitant]
     Active Substance: FAMOTIDINE

REACTIONS (1)
  - Drug ineffective [None]
